FAERS Safety Report 12216281 (Version 2)
Quarter: 2016Q2

REPORT INFORMATION
  Report Type: Spontaneous
  Country: US (occurrence: US)
  Receive Date: 20160329
  Receipt Date: 20160509
  Transmission Date: 20160815
  Serious: No
  Sender: FDA-Public Use
  Company Number: US-ASTRAZENECA-2016SE31048

PATIENT

DRUGS (1)
  1. LYNPARZA [Suspect]
     Active Substance: OLAPARIB
     Indication: OVARIAN CANCER
     Dosage: 16 ORAL CHEMO PILLS (50MG TAB) PER DAY FOR THE LAST 12 MONTHS,400 MG BID
     Route: 048
     Dates: start: 201503

REACTIONS (1)
  - Adverse drug reaction [Unknown]
